FAERS Safety Report 18457264 (Version 3)
Quarter: 2021Q1

REPORT INFORMATION
  Report Type: Report from Study
  Country: CA (occurrence: CA)
  Receive Date: 20201103
  Receipt Date: 20210311
  Transmission Date: 20210419
  Serious: Yes (Hospitalization)
  Sender: FDA-Public Use
  Company Number: CA-JNJFOC-20201048501

PATIENT
  Age: 14 Year
  Sex: Male
  Weight: 53.5 kg

DRUGS (2)
  1. REMICADE [Suspect]
     Active Substance: INFLIXIMAB
     Indication: COLITIS ULCERATIVE
     Route: 042
     Dates: start: 20201009
  2. REMICADE [Suspect]
     Active Substance: INFLIXIMAB
     Dosage: EXTRA DOSE,
     Route: 042
     Dates: start: 20201023, end: 20201023

REACTIONS (3)
  - Colitis ulcerative [Unknown]
  - Therapeutic response decreased [Unknown]
  - Extra dose administered [Unknown]

NARRATIVE: CASE EVENT DATE: 202010
